FAERS Safety Report 6161720-4 (Version None)
Quarter: 2009Q2

REPORT INFORMATION
  Report Type: 
  Country: None (occurrence: None)
  Receive Date: 20090417
  Receipt Date: 20090417
  Transmission Date: 20091009
  Serious: Yes (Other)
  Sender: FDA-Public Use
  Company Number: None

PATIENT
  Sex: Female

DRUGS (1)
  1. AZO STANDARD MAXIMUM STRENGTH [Suspect]
     Indication: URINARY TRACT INFECTION
     Dosage: 2 TABLETS X 3 TIMES/DAY
     Dates: start: 20090121

REACTIONS (3)
  - HEADACHE [None]
  - IDIOSYNCRATIC DRUG REACTION [None]
  - VOMITING [None]
